FAERS Safety Report 23443780 (Version 2)
Quarter: 2024Q1

REPORT INFORMATION
  Report Type: Spontaneous
  Country: US (occurrence: US)
  Receive Date: 20240125
  Receipt Date: 20240311
  Transmission Date: 20240410
  Serious: No
  Sender: FDA-Public Use
  Company Number: US-Calliditas-2024CAL00086

PATIENT
  Age: 50 Year
  Sex: Male

DRUGS (1)
  1. TARPEYO [Suspect]
     Active Substance: BUDESONIDE
     Indication: IgA nephropathy
     Dosage: 16 MG (4 MG CAPSULES) ONCE DAILY
     Route: 048
     Dates: start: 20231129

REACTIONS (5)
  - Back pain [Unknown]
  - Pollakiuria [Unknown]
  - Weight increased [Unknown]
  - Dyspnoea [Unknown]
  - Dyspnoea [Unknown]
